FAERS Safety Report 14877713 (Version 1)
Quarter: 2018Q2

REPORT INFORMATION
  Report Type: Spontaneous
  Country: US (occurrence: US)
  Receive Date: 20180510
  Receipt Date: 20180510
  Transmission Date: 20180711
  Serious: No
  Sender: FDA-Public Use
  Company Number: US-009507513-1805USA001181

PATIENT
  Sex: Female

DRUGS (1)
  1. FOLLISTIM [Suspect]
     Active Substance: FOLLITROPIN
     Dosage: STRENGTH REPORTED AS 300 U, 75 UNITS DAILY
     Route: 058
     Dates: start: 20180409

REACTIONS (3)
  - Circumstance or information capable of leading to medication error [Unknown]
  - Product packaging quantity issue [Unknown]
  - No adverse event [Unknown]

NARRATIVE: CASE EVENT DATE: 20180411
